FAERS Safety Report 11779080 (Version 1)
Quarter: 2015Q4

REPORT INFORMATION
  Report Type: Spontaneous
  Country: US (occurrence: US)
  Receive Date: 20151125
  Receipt Date: 20151125
  Transmission Date: 20160304
  Serious: Yes (Life-Threatening)
  Sender: FDA-Public Use
  Company Number: US-BANPHARM-20154454

PATIENT
  Age: 54 Year
  Sex: Female

DRUGS (2)
  1. LOPERAMIDE UNKNOWN PRODUCT [Suspect]
     Active Substance: LOPERAMIDE
     Indication: DIARRHOEA
     Dosage: DF 144 MG, QD,
  2. METFORMIN [Concomitant]
     Active Substance: METFORMIN HYDROCHLORIDE
     Indication: DIABETES MELLITUS

REACTIONS (6)
  - Nodal rhythm [None]
  - Intentional overdose [None]
  - Sinus arrest [Recovered/Resolved]
  - Ventricular extrasystoles [None]
  - Hypotension [None]
  - Ventricular tachycardia [Recovered/Resolved]
